FAERS Safety Report 6818001-2 (Version None)
Quarter: 2010Q3

REPORT INFORMATION
  Report Type: 
  Country: None (occurrence: None)
  Receive Date: 20100706
  Receipt Date: 20100625
  Transmission Date: 20110219
  Serious: Yes (Other)
  Sender: FDA-Public Use
  Company Number: GXKR2010GB07109

PATIENT
  Age: 66 Year
  Sex: Male

DRUGS (3)
  1. RANITIDINE HCL [Suspect]
     Indication: DYSPEPSIA
     Dosage: 150 MG, BID
     Route: 065
     Dates: start: 20090305, end: 20090310
  2. AMLODIPINE [Concomitant]
     Dosage: 5 MG, BID
     Route: 065
  3. ACETYLSALICYLIC ACID [Concomitant]
     Dosage: 75 MG, UNK
     Route: 065

REACTIONS (1)
  - CHEST PAIN [None]
